FAERS Safety Report 6993695-X (Version None)
Quarter: 2010Q3

REPORT INFORMATION
  Report Type: 
  Country: None (occurrence: None)
  Receive Date: 20100917
  Receipt Date: 20100719
  Transmission Date: 20110219
  Serious: Yes (Hospitalization)
  Sender: FDA-Public Use
  Company Number: US-ASTRAZENECA-2010SE33945

PATIENT
  Age: 14923 Day
  Sex: Female

DRUGS (3)
  1. SEROQUEL [Suspect]
     Route: 048
  2. APIXABAN [Suspect]
     Indication: EMBOLISM ARTERIAL
     Dosage: 5 MG/10 MG DAILY
     Route: 048
  3. PLACEBO [Suspect]
     Indication: EMBOLISM ARTERIAL
     Route: 048

REACTIONS (1)
  - AKATHISIA [None]
